FAERS Safety Report 10939835 (Version 2)
Quarter: 2015Q2

REPORT INFORMATION
  Report Type: Spontaneous
  Country: US (occurrence: US)
  Receive Date: 20150322
  Receipt Date: 20150526
  Transmission Date: 20150821
  Serious: No
  Sender: FDA-Public Use
  Company Number: US-JNJFOC-20130300174

PATIENT

DRUGS (5)
  1. BENZTROPINE [Concomitant]
     Active Substance: BENZTROPINE
     Route: 065
  2. LITHIUM. [Concomitant]
     Active Substance: LITHIUM
     Dosage: 1QAM AND 3QHS
     Route: 065
  3. RISPERDAL CONSTA [Suspect]
     Active Substance: RISPERIDONE
     Indication: PRODUCT USED FOR UNKNOWN INDICATION
     Route: 030
     Dates: start: 20130116
  4. ABILIFY [Concomitant]
     Active Substance: ARIPIPRAZOLE
     Indication: SLEEP DISORDER
     Dosage: QHR
     Route: 065
  5. RISPERDAL [Concomitant]
     Active Substance: RISPERIDONE
     Route: 065

REACTIONS (2)
  - Syringe issue [Not Recovered/Not Resolved]
  - Drug dose omission [Not Recovered/Not Resolved]

NARRATIVE: CASE EVENT DATE: 20130127
